FAERS Safety Report 6891416-2 (Version None)
Quarter: 2010Q3

REPORT INFORMATION
  Report Type: 
  Country: None (occurrence: None)
  Receive Date: 20100731
  Receipt Date: 20070726
  Transmission Date: 20110219
  Serious: No
  Sender: FDA-Public Use
  Company Number: US-PFIZER INC-2007061567

PATIENT
  Sex: Male
  Weight: 136.36 kg

DRUGS (7)
  1. CAVERJECT [Suspect]
     Indication: ERECTILE DYSFUNCTION
  2. VIAGRA [Suspect]
     Indication: ERECTILE DYSFUNCTION
  3. ATENOLOL [Concomitant]
  4. ACETYLSALICYLIC ACID SRT [Concomitant]
  5. ACYCLOVIR [Concomitant]
  6. MICARDIS [Concomitant]
  7. SIMVASTATIN [Concomitant]

REACTIONS (2)
  - DEVICE FAILURE [None]
  - EMOTIONAL DISORDER [None]
